FAERS Safety Report 9391288 (Version 2)
Quarter: 2013Q3

REPORT INFORMATION
  Report Type: Spontaneous
  Country: FR (occurrence: FR)
  Receive Date: 20130709
  Receipt Date: 20130806
  Transmission Date: 20140515
  Serious: Yes (Hospitalization, Other)
  Sender: FDA-Public Use
  Company Number: FR-ASTRAZENECA-2013SE50389

PATIENT
  Age: 1093 Month
  Sex: Female

DRUGS (16)
  1. ARIMIDEX [Suspect]
     Dosage: LONG LASTING TREATMENT
     Route: 048
  2. COLCHICINE OPOCALCIUM [Suspect]
     Indication: CHONDROCALCINOSIS
     Route: 048
     Dates: start: 20130507, end: 20130513
  3. TARDYFERON [Suspect]
     Dosage: 80 MG, LONG LASTING TREATMENT
     Route: 048
  4. FUROSEMIDE [Suspect]
     Dosage: 40 MG, LONG LASTING TREATMENT
     Route: 048
  5. AUGMENTIN [Suspect]
     Route: 065
     Dates: start: 20130510, end: 20130516
  6. PRAXADA [Concomitant]
  7. SPECIAFOLDINE [Concomitant]
  8. FOZITEC [Concomitant]
  9. PANTOPRAZOLE [Concomitant]
  10. XATRAL [Concomitant]
  11. ALPRAZOLAM [Concomitant]
  12. ZOLPIDEM [Concomitant]
  13. KALEORID [Concomitant]
  14. DOLIPRANE [Concomitant]
  15. MOTILIUM [Concomitant]
  16. COUMADIN [Concomitant]

REACTIONS (5)
  - Clostridium colitis [Recovered/Resolved]
  - Faeces discoloured [Recovered/Resolved]
  - Haemorrhage [Unknown]
  - Chondrocalcinosis [Unknown]
  - Diarrhoea [Recovered/Resolved]
